FAERS Safety Report 8243908-1 (Version None)
Quarter: 2012Q1

REPORT INFORMATION
  Report Type: 
  Country: None (occurrence: None)
  Receive Date: 20120329
  Receipt Date: 20110623
  Transmission Date: 20120608
  Serious: No
  Sender: FDA-Public Use
  Company Number: US-MYLANLABS-2011S1010865

PATIENT
  Age: 34 Year
  Sex: Female
  Weight: 81.65 kg

DRUGS (4)
  1. LEVOTHYROXINE SODIUM [Concomitant]
     Route: 048
  2. LORATADINE [Concomitant]
     Route: 048
  3. ESTRADIOL [Suspect]
     Indication: HORMONE REPLACEMENT THERAPY
     Dosage: CHANGED QWEEK.
     Route: 062
     Dates: start: 20101201, end: 20110201
  4. ESTRADIOL [Suspect]
     Dosage: CHANGED QWEEK.
     Route: 062
     Dates: start: 20110401

REACTIONS (1)
  - APPLICATION SITE PRURITUS [None]
